FAERS Safety Report 24770308 (Version 2)
Quarter: 2025Q1

REPORT INFORMATION
  Report Type: Spontaneous
  Country: FR (occurrence: FR)
  Receive Date: 20241224
  Receipt Date: 20250109
  Transmission Date: 20250408
  Serious: Yes (Disabling)
  Sender: SANOFI AVENTIS
  Company Number: FR-SANOFI-02331168

PATIENT
  Age: 15 Year
  Sex: Male

DRUGS (2)
  1. RIFATER [Suspect]
     Active Substance: ISONIAZID\PYRAZINAMIDE\RIFAMPIN
     Indication: Tuberculosis
     Dosage: 6 DF, QD
     Route: 065
     Dates: start: 202410, end: 2024
  2. ETHAMBUTOL HYDROCHLORIDE [Concomitant]
     Active Substance: ETHAMBUTOL HYDROCHLORIDE
     Dosage: 2 DF, QD
     Dates: start: 202410

REACTIONS (7)
  - Stupor [Recovering/Resolving]
  - Depersonalisation/derealisation disorder [Recovering/Resolving]
  - Psychiatric decompensation [Unknown]
  - Amnesia [Unknown]
  - Anxiety disorder [Recovering/Resolving]
  - Mutism [Recovering/Resolving]
  - Cognitive disorder [Recovering/Resolving]

NARRATIVE: CASE EVENT DATE: 20241101
